FAERS Safety Report 5360086-7 (Version None)
Quarter: 2007Q2

REPORT INFORMATION
  Report Type: 
  Country: None (occurrence: None)
  Receive Date: 20070618
  Receipt Date: 20060719
  Transmission Date: 20071010
  Serious: No
  Sender: FDA-Public Use
  Company Number: US-ASTRAZENECA-2006UW09750

PATIENT
  Age: 71 Year
  Sex: Female
  Weight: 64.1 kg

DRUGS (1)
  1. FASLODEX [Suspect]
     Indication: BREAST CANCER FEMALE
     Route: 030
     Dates: start: 20040101

REACTIONS (2)
  - ALOPECIA [None]
  - ECZEMA [None]
